FAERS Safety Report 8596218 (Version 3)
Quarter: 2013Q4

REPORT INFORMATION
  Report Type: Spontaneous
  Country: US (occurrence: US)
  Receive Date: 20120605
  Receipt Date: 20131030
  Transmission Date: 20140711
  Serious: Yes (Hospitalization, Other)
  Sender: FDA-Public Use
  Company Number: US-BAYER-2012-053901

PATIENT
  Age: 41 Year
  Sex: Female
  Weight: 81.63 kg

DRUGS (7)
  1. YAZ [Suspect]
     Indication: CONTRACEPTION
     Dosage: UNK
     Dates: start: 2004, end: 2011
  2. YASMIN [Suspect]
     Indication: CONTRACEPTION
     Dosage: UNK
     Dates: start: 2004, end: 2011
  3. PHENERGAN [Concomitant]
     Indication: NAUSEA
     Dosage: UNK
  4. PHENERGAN [Concomitant]
     Indication: HEADACHE
  5. HYDROCODONE [Concomitant]
     Indication: PAIN
     Dosage: UNK
  6. HYDROCODONE [Concomitant]
     Indication: HEADACHE
  7. ADVIL [Concomitant]
     Indication: HEADACHE
     Dosage: UNK

REACTIONS (7)
  - Intracranial venous sinus thrombosis [None]
  - Cerebral venous thrombosis [None]
  - Cerebral thrombosis [None]
  - Cerebrovascular accident [None]
  - Injury [None]
  - Emotional distress [None]
  - Pain [None]
